FAERS Safety Report 9230460 (Version 1)
Quarter: 2013Q2

REPORT INFORMATION
  Report Type: Spontaneous
  Country: FR (occurrence: FR)
  Receive Date: 20130415
  Receipt Date: 20130415
  Transmission Date: 20140414
  Serious: Yes (Other)
  Sender: FDA-Public Use
  Company Number: FR-PFIZER INC-2013114050

PATIENT
  Age: 41 Year
  Sex: Female

DRUGS (2)
  1. CYTOTEC [Suspect]
     Indication: ABORTION INDUCED
     Dosage: 2 DF, 1X/DAY
     Route: 067
     Dates: start: 20121216, end: 20121216
  2. CYTOTEC [Suspect]
     Dosage: 2 DF, 1X/DAY
     Route: 048
     Dates: start: 20121216, end: 20121216

REACTIONS (4)
  - Drug ineffective for unapproved indication [Unknown]
  - Vaginal haemorrhage [Not Recovered/Not Resolved]
  - Uterine infection [Not Recovered/Not Resolved]
  - Malaise [Unknown]
